FAERS Safety Report 11909259 (Version 2)
Quarter: 2016Q1

REPORT INFORMATION
  Report Type: Spontaneous
  Country: US (occurrence: US)
  Receive Date: 20160112
  Receipt Date: 20160113
  Transmission Date: 20160526
  Serious: Yes (Other)
  Sender: FDA-Public Use
  Company Number: US-ACCORD-036936

PATIENT

DRUGS (1)
  1. CLONAZEPAM ACCORD [Suspect]
     Active Substance: CLONAZEPAM
     Indication: POST-TRAUMATIC STRESS DISORDER
     Dosage: STRENGTH: 1 MG

REACTIONS (6)
  - Product substitution issue [Unknown]
  - Insomnia [Unknown]
  - Product quality issue [Unknown]
  - Feeling abnormal [Unknown]
  - General physical health deterioration [Unknown]
  - No therapeutic response [Unknown]
